FAERS Safety Report 10533744 (Version 1)
Quarter: 2014Q4

REPORT INFORMATION
  Report Type: Spontaneous
  Country: US (occurrence: None)
  Receive Date: 20141021
  Receipt Date: 20141021
  Transmission Date: 20150529
  Serious: Yes (Other)
  Sender: FDA-Public Use
  Company Number: None

PATIENT
  Age: 65 Year
  Sex: Female
  Weight: 65.77 kg

DRUGS (1)
  1. CELESTONE [Suspect]
     Active Substance: BETAMETHASONE
     Indication: NERVE COMPRESSION

REACTIONS (9)
  - Vision blurred [None]
  - Irritable bowel syndrome [None]
  - Vomiting [None]
  - Abdominal discomfort [None]
  - Dizziness [None]
  - Heart rate increased [None]
  - Contusion [None]
  - Tenderness [None]
  - Nausea [None]

NARRATIVE: CASE EVENT DATE: 20141014
